FAERS Safety Report 4360402-9 (Version None)
Quarter: 2004Q2

REPORT INFORMATION
  Report Type: 
  Country: None (occurrence: None)
  Receive Date: 20040514
  Receipt Date: 20040506
  Transmission Date: 20050107
  Serious: Yes (Other)
  Sender: FDA-Public Use
  Company Number: 200417815BWH

PATIENT
  Age: 58 Year
  Sex: Male

DRUGS (2)
  1. LEVITRA [Suspect]
     Indication: ERECTILE DYSFUNCTION
     Dosage: 20 MG, PRN, ORAL
     Route: 048
  2. DYAZIDE [Concomitant]

REACTIONS (4)
  - BLOODY DISCHARGE [None]
  - PENILE DISCHARGE [None]
  - PROSTATE EXAMINATION ABNORMAL [None]
  - PROTEIN URINE PRESENT [None]
